FAERS Safety Report 6711076-0 (Version None)
Quarter: 2010Q2

REPORT INFORMATION
  Report Type: 
  Country: None (occurrence: None)
  Receive Date: 20100505
  Receipt Date: 20090528
  Transmission Date: 20101027
  Serious: No
  Sender: FDA-Public Use
  Company Number: US-KINGPHARMUSA00001-K200900649

PATIENT
  Sex: Female
  Weight: 49.887 kg

DRUGS (3)
  1. AVINZA [Suspect]
     Indication: CANCER PAIN
     Route: 048
     Dates: end: 20090501
  2. ACTIQ [Concomitant]
     Indication: BREAKTHROUGH PAIN
     Dosage: 3 DF, PRN
  3. MORPHINE SULFATE [Suspect]
     Indication: BREAKTHROUGH PAIN
     Dosage: 15 MG, PRN
     Dates: end: 20090501

REACTIONS (2)
  - DRUG INEFFECTIVE [None]
  - RASH [None]
